FAERS Safety Report 6067971-1 (Version None)
Quarter: 2009Q1

REPORT INFORMATION
  Report Type: 
  Country: None (occurrence: None)
  Receive Date: 20090206
  Receipt Date: 20090202
  Transmission Date: 20090719
  Serious: Yes (Life-Threatening, Other)
  Sender: FDA-Public Use
  Company Number: NL-WYE-G03044209

PATIENT
  Age: 71 Year
  Sex: Male

DRUGS (5)
  1. TEMSIROLIMUS [Suspect]
     Indication: RENAL CELL CARCINOMA
     Dosage: UNK DOSE AND FREQUENCY
     Dates: start: 20081125
  2. NITROGLYCERIN [Concomitant]
     Dosage: PATCH: 37.5 MG 12 HOURS PER DAY
  3. CARVEDILOL [Concomitant]
     Route: 048
  4. ASCAL [Concomitant]
     Route: 048
  5. BURINEX [Concomitant]
     Route: 048

REACTIONS (2)
  - MYOCARDIAL INFARCTION [None]
  - PNEUMONIA [None]
